FAERS Safety Report 16810632 (Version 2)
Quarter: 2019Q3

REPORT INFORMATION
  Report Type: Spontaneous
  Country: JP (occurrence: JP)
  Receive Date: 20190916
  Receipt Date: 20190926
  Transmission Date: 20191005
  Serious: Yes (Death, Hospitalization, Other)
  Sender: FDA-Public Use
  Company Number: JP-009507513-1909JPN000907J

PATIENT
  Age: 70 Year
  Sex: Male
  Weight: 93 kg

DRUGS (16)
  1. AMLODIPINE [Concomitant]
     Active Substance: AMLODIPINE BESYLATE
     Indication: HYPERTENSION
     Dosage: 1 DOSAGE FORM, QD
     Route: 048
     Dates: start: 20120215, end: 20190903
  2. TRAZENTA [Concomitant]
     Active Substance: LINAGLIPTIN
     Indication: TYPE 2 DIABETES MELLITUS
     Dosage: 1 DOSAGE FORM, QD
     Route: 048
     Dates: start: 20181107, end: 20190901
  3. ACTOS [Concomitant]
     Active Substance: PIOGLITAZONE HYDROCHLORIDE
     Dosage: UNK
     Route: 065
  4. KEYTRUDA [Suspect]
     Active Substance: PEMBROLIZUMAB
     Indication: TRANSITIONAL CELL CARCINOMA
     Dosage: 200 MILLIGRAM, Q3W
     Route: 041
     Dates: start: 20190614, end: 20190725
  5. JANUVIA [Concomitant]
     Active Substance: SITAGLIPTIN PHOSPHATE
     Dosage: UNK
     Route: 048
  6. FEBURIC [Concomitant]
     Active Substance: FEBUXOSTAT
     Indication: HYPERURICAEMIA
     Dosage: 2 DOSAGE FORM, QD
     Route: 048
     Dates: start: 20180112, end: 20190901
  7. CALONAL [Suspect]
     Active Substance: ACETAMINOPHEN
     Indication: PYREXIA
     Dosage: 1 DOSAGE FORM
     Route: 048
     Dates: start: 20190705
  8. CALONAL [Suspect]
     Active Substance: ACETAMINOPHEN
     Dosage: 1 DOSAGE FORM, BID
     Route: 048
     Dates: start: 20190822, end: 20190901
  9. NORVASC [Concomitant]
     Active Substance: AMLODIPINE BESYLATE
     Dosage: UNK
     Route: 065
  10. BLOPRESS [Concomitant]
     Active Substance: CANDESARTAN CILEXETIL
     Dosage: UNK
     Route: 065
  11. CALONAL [Suspect]
     Active Substance: ACETAMINOPHEN
     Dosage: 1 DOSAGE FORM, QID
     Route: 048
     Dates: start: 20190730, end: 20190814
  12. CALONAL [Suspect]
     Active Substance: ACETAMINOPHEN
     Indication: PAIN
     Dosage: 1 DOSAGE FORM
     Route: 048
     Dates: start: 20190819
  13. ARGAMATE [Concomitant]
     Active Substance: CALCIUM POLYSTYRENE SULFONATE
     Indication: HYPERKALAEMIA
  14. ZYLORIC [Concomitant]
     Active Substance: ALLOPURINOL
     Dosage: UNK
     Route: 065
  15. CALFINA [Concomitant]
     Active Substance: ALFACALCIDOL
     Dosage: UNK
     Route: 065
  16. ARGAMATE [Concomitant]
     Active Substance: CALCIUM POLYSTYRENE SULFONATE
     Indication: CHRONIC KIDNEY DISEASE
     Dosage: 1 PIECE, TID
     Route: 048
     Dates: start: 20180209, end: 20190903

REACTIONS (10)
  - Renal impairment [Unknown]
  - Nephrogenic anaemia [Unknown]
  - Erythema multiforme [Recovering/Resolving]
  - Pyrexia [Unknown]
  - Rash pruritic [Not Recovered/Not Resolved]
  - Erythema [Not Recovered/Not Resolved]
  - Skin erosion [Not Recovered/Not Resolved]
  - Toxic epidermal necrolysis [Fatal]
  - Interstitial lung disease [Recovering/Resolving]
  - Subcutaneous abscess [Recovering/Resolving]

NARRATIVE: CASE EVENT DATE: 20190615
